FAERS Safety Report 9312677 (Version 4)
Quarter: 2013Q4

REPORT INFORMATION
  Report Type: Report from Study
  Country: CA (occurrence: CA)
  Receive Date: 20130528
  Receipt Date: 20131009
  Transmission Date: 20140711
  Serious: Yes (Hospitalization, Other)
  Sender: FDA-Public Use
  Company Number: CA-UCBSA-086476

PATIENT
  Age: 75 Year
  Sex: Female
  Weight: 54.89 kg

DRUGS (14)
  1. CIMZIA [Suspect]
     Indication: RHEUMATOID ARTHRITIS
     Dosage: NUMBER OF INTAKES X 3
     Route: 058
     Dates: start: 20130424, end: 20130522
  2. PANTOPRAZOLE [Concomitant]
     Route: 048
  3. FOLIC ACID [Concomitant]
     Route: 048
  4. METHOTREXATE [Concomitant]
     Indication: RHEUMATOID ARTHRITIS
     Route: 048
  5. PREDNISONE [Concomitant]
     Indication: RHEUMATOID ARTHRITIS
     Route: 048
  6. PLAQUENIL [Concomitant]
     Indication: RHEUMATOID ARTHRITIS
     Route: 048
  7. LOSARTAN [Concomitant]
     Indication: HYPERTENSION
     Route: 048
  8. VITAMIN B12 [Concomitant]
     Indication: ANAEMIA
     Route: 048
  9. SYNTHROID [Concomitant]
     Indication: HYPOTHYROIDISM
     Route: 048
  10. RISEDRONATE [Concomitant]
     Indication: OSTEOPOROSIS
     Route: 048
  11. CARBOCAL D [Concomitant]
     Indication: OSTEOPOROSIS
     Dosage: DOSE: 500-400 MG-UI, TWICE DAILY
     Route: 048
  12. FENTANYL [Concomitant]
     Indication: PAIN
     Dosage: DOSE: 25+12 MCG, EVERY 3 DAYS
  13. DILAUDID [Concomitant]
     Indication: PAIN
     Dosage: DOSE: 4 MG, EVERY 4 HRS
  14. TYLENOL [Concomitant]
     Indication: PAIN

REACTIONS (6)
  - Hypoglycaemia [Recovered/Resolved]
  - Arthralgia [Recovered/Resolved]
  - Asthenia [Recovering/Resolving]
  - Diarrhoea [Recovering/Resolving]
  - Nausea [Recovered/Resolved]
  - Intestinal obstruction [Unknown]
